FAERS Safety Report 9340134 (Version 3)
Quarter: 2014Q1

REPORT INFORMATION
  Report Type: Spontaneous
  Country: US (occurrence: US)
  Receive Date: 20130610
  Receipt Date: 20140310
  Transmission Date: 20141002
  Serious: Yes (Other)
  Sender: FDA-Public Use
  Company Number: US-ASTELLAS-2013US004983

PATIENT
  Sex: Male

DRUGS (2)
  1. XTANDI [Suspect]
     Indication: PROSTATE CANCER
     Dosage: 160 MG, UID/QD
     Route: 048
     Dates: start: 20130311
  2. XTANDI [Suspect]
     Dosage: UNK
     Route: 048

REACTIONS (5)
  - Disorientation [Recovering/Resolving]
  - Headache [Unknown]
  - Myalgia [Unknown]
  - Fatigue [Recovering/Resolving]
  - Disturbance in attention [Recovered/Resolved]
